FAERS Safety Report 18972558 (Version 1)
Quarter: 2021Q1

REPORT INFORMATION
  Report Type: Spontaneous
  Country: US (occurrence: US)
  Receive Date: 20210304
  Receipt Date: 20210304
  Transmission Date: 20210420
  Serious: Yes (Other)
  Sender: FDA-Public Use
  Company Number: None

PATIENT
  Age: 40 Year
  Sex: Female
  Weight: 71.3 kg

DRUGS (6)
  1. DIPHENHYDRAMINE 50 MG/ML [Concomitant]
     Active Substance: DIPHENHYDRAMINE
     Dates: start: 20190221
  2. GAMUNEX?C [Suspect]
     Active Substance: HUMAN IMMUNOGLOBULIN G
     Indication: DERMATOMYOSITIS
     Dosage: ?          OTHER FREQUENCY:EVERY 8 WEEKS;?
     Route: 041
     Dates: start: 20190221
  3. GAMUNEX?C [Suspect]
     Active Substance: HUMAN IMMUNOGLOBULIN G
     Indication: DERMATOMYOSITIS
     Dosage: ?          OTHER FREQUENCY:EVERY 8 WEEKS;?
     Route: 041
     Dates: start: 20190221
  4. FAMOTIDINE 20 MG/2 ML [Concomitant]
     Dates: start: 20190221
  5. TYLENOL 500 MG TABLET [Concomitant]
     Dates: start: 20190221
  6. SOLU MEDROL 125 MG/ML [Concomitant]
     Dates: start: 20190221

REACTIONS (3)
  - Urticaria [None]
  - Dyspepsia [None]
  - Erythema [None]

NARRATIVE: CASE EVENT DATE: 20210304
